FAERS Safety Report 8046409-9 (Version None)
Quarter: 2012Q1

REPORT INFORMATION
  Report Type: 
  Country: None (occurrence: None)
  Receive Date: 20120113
  Receipt Date: 20120104
  Transmission Date: 20120608
  Serious: Yes (Other)
  Sender: FDA-Public Use
  Company Number: CH-ASTRAZENECA-2012SE00811

PATIENT
  Age: 71 Year
  Sex: Female
  Weight: 47 kg

DRUGS (6)
  1. METOPROLOL SUCCINATE [Suspect]
     Indication: ESSENTIAL HYPERTENSION
     Route: 048
     Dates: start: 20070901
  2. PRAMIPEXOLE DIHYDROCHLORIDE [Suspect]
     Indication: RESTLESS LEGS SYNDROME
     Route: 048
     Dates: start: 20100701
  3. CRESTOR [Suspect]
     Route: 048
     Dates: start: 20110826, end: 20111201
  4. ENALAPRIL MALEATE AND HYDROCHLOROTHIAZIDE [Suspect]
     Indication: ESSENTIAL HYPERTENSION
     Route: 048
     Dates: start: 20101001
  5. ENALAPRIL MALEATE [Suspect]
     Indication: ESSENTIAL HYPERTENSION
     Route: 048
     Dates: start: 20090601
  6. BURGERSTEIN ZINKGLUCONATE [Suspect]
     Route: 048
     Dates: start: 20060101

REACTIONS (2)
  - DYSGEUSIA [None]
  - PARAESTHESIA ORAL [None]
